FAERS Safety Report 5921377-1 (Version None)
Quarter: 2008Q4

REPORT INFORMATION
  Report Type: 
  Country: None (occurrence: None)
  Receive Date: 20081014
  Receipt Date: 20081006
  Transmission Date: 20090506
  Serious: Yes (Hospitalization)
  Sender: FDA-Public Use
  Company Number: 2008SP016810

PATIENT
  Age: 57 Year
  Sex: Female

DRUGS (6)
  1. PEG-INTRON [Suspect]
     Indication: HEPATITIS C
     Dosage: 80 MCG;QW;SC
     Route: 058
     Dates: start: 20080624
  2. RIBAVIRIN [Suspect]
     Indication: HEPATITIS C
     Dosage: 400 MG;BID;PO
     Route: 048
     Dates: start: 20080624
  3. MOXIFLOXACIN HCL [Suspect]
     Indication: PNEUMONIA
     Dosage: ;PO
     Route: 048
     Dates: start: 20080815, end: 20080817
  4. ANTIBIOTIC [Suspect]
     Indication: PNEUMONIA
     Dosage: ;IV
     Route: 042
     Dates: start: 20080817
  5. ALDACTONE [Concomitant]
  6. TENORMIN [Concomitant]

REACTIONS (10)
  - AGITATION [None]
  - BACTERIAL INFECTION [None]
  - BLOOD ALBUMIN DECREASED [None]
  - DIARRHOEA [None]
  - DRUG HYPERSENSITIVITY [None]
  - FATIGUE [None]
  - FEELING ABNORMAL [None]
  - HYPONATRAEMIA [None]
  - HYPOPHAGIA [None]
  - PNEUMONIA [None]
